FAERS Safety Report 9241155 (Version 1)
Quarter: 2013Q1

REPORT INFORMATION
  Report Type: Spontaneous
  Country: US (occurrence: None)
  Receive Date: 20121120
  Receipt Date: 20121120
  Transmission Date: 20140127
  Serious: No
  Sender: FDA-Public Use
  Company Number: 1000038225

PATIENT
  Age: 61 Year
  Sex: Female

DRUGS (5)
  1. VIIBRYD [Suspect]
     Indication: DEPRESSION
     Route: 048
     Dates: start: 201208
  2. NOVOLOG (INSULIN ASPART) [Concomitant]
  3. LISINOPRIL (LISINOPRIL) [Concomitant]
  4. LANTUS (INSULIN GLARGINE) [Concomitant]
  5. GLUCOPHAGE (METFORMIN HYDROCHLORIDE) [Concomitant]

REACTIONS (2)
  - Weight decreased [None]
  - Blood glucose decreased [None]
